FAERS Safety Report 6991994-9 (Version None)
Quarter: 2010Q3

REPORT INFORMATION
  Report Type: 
  Country: None (occurrence: None)
  Receive Date: 20100917
  Receipt Date: 20100908
  Transmission Date: 20110219
  Serious: Yes (Other)
  Sender: FDA-Public Use
  Company Number: US-PFIZER INC-2010114969

PATIENT
  Sex: Female

DRUGS (2)
  1. GEODON [Suspect]
     Dosage: UNK
  2. CAFFEINE [Interacting]
     Dosage: UNK

REACTIONS (2)
  - DRUG INTERACTION [None]
  - EXTRAPYRAMIDAL DISORDER [None]
